FAERS Safety Report 12567346 (Version 1)
Quarter: 2016Q3

REPORT INFORMATION
  Report Type: Spontaneous
  Country: US (occurrence: US)
  Receive Date: 20160718
  Receipt Date: 20160718
  Transmission Date: 20161109
  Serious: No
  Sender: FDA-Public Use
  Company Number: GXBR2016US001710

PATIENT
  Age: 73 Year
  Sex: Female
  Weight: 70.3 kg

DRUGS (1)
  1. AMOXICILLIN CAPSULES, USP [Suspect]
     Active Substance: AMOXICILLIN
     Indication: ACNE
     Dosage: 500 MG, BID
     Route: 048
     Dates: start: 20160411

REACTIONS (2)
  - Musculoskeletal pain [Unknown]
  - Abdominal pain upper [Unknown]

NARRATIVE: CASE EVENT DATE: 20160414
